FAERS Safety Report 8231322-4 (Version None)
Quarter: 2012Q1

REPORT INFORMATION
  Report Type: 
  Country: None (occurrence: None)
  Receive Date: 20120320
  Receipt Date: 20120308
  Transmission Date: 20120608
  Serious: Yes (Hospitalization)
  Sender: FDA-Public Use
  Company Number: 2012SP009783

PATIENT
  Age: 51 Year
  Sex: Male

DRUGS (3)
  1. PEG-INTRON [Suspect]
     Indication: HEPATITIS C
     Dosage: 100 MCG;QW;SC
     Route: 058
     Dates: start: 20110620, end: 20120114
  2. REBETOL [Suspect]
     Indication: HEPATITIS C
     Dosage: 200 MG; TID; PO
     Route: 048
     Dates: start: 20110620, end: 20120114
  3. REBETOL [Suspect]
     Indication: HEPATITIS C
     Dosage: 200 MG;TID;PO
     Route: 048
     Dates: start: 20110620, end: 20120114

REACTIONS (4)
  - ASTHENIA [None]
  - DERMATOMYOSITIS [None]
  - BLOOD CREATINE PHOSPHOKINASE INCREASED [None]
  - RASH GENERALISED [None]
